FAERS Safety Report 9893062 (Version 2)
Quarter: 2014Q1

REPORT INFORMATION
  Report Type: Spontaneous
  Country: JP (occurrence: JP)
  Receive Date: 20140213
  Receipt Date: 20140328
  Transmission Date: 20141002
  Serious: Yes (Death)
  Sender: FDA-Public Use
  Company Number: JP-ROCHE-1346084

PATIENT
  Age: 68 Year
  Sex: Male
  Weight: 64 kg

DRUGS (10)
  1. BONVIVA [Suspect]
     Indication: OSTEOPOROSIS
     Route: 042
     Dates: start: 20131230, end: 20131230
  2. BAYASPIRIN [Concomitant]
     Route: 048
  3. PLAVIX [Concomitant]
     Route: 048
  4. NEXIUM [Concomitant]
     Route: 048
  5. TSUMURA SHAKUYAKUKANZOTO [Concomitant]
     Route: 048
  6. CALTAN [Concomitant]
     Route: 048
  7. LEVOCARNITINE [Concomitant]
     Route: 048
  8. REMITCH [Concomitant]
     Route: 048
  9. DEPAS [Concomitant]
     Route: 048
  10. WARFARIN [Concomitant]
     Route: 048

REACTIONS (5)
  - Death [Fatal]
  - Arrhythmia [Fatal]
  - Coronary artery thrombosis [Fatal]
  - Hypoglycaemic coma [Fatal]
  - Hyperkalaemia [Fatal]
